FAERS Safety Report 7741563-8 (Version None)
Quarter: 2011Q3

REPORT INFORMATION
  Report Type: 
  Country: None (occurrence: None)
  Receive Date: 20110909
  Receipt Date: 20110905
  Transmission Date: 20111222
  Serious: Yes (Death)
  Sender: FDA-Public Use
  Company Number: IT-ASTRAZENECA-2011SE53180

PATIENT
  Age: 30 Year
  Sex: Male
  Weight: 150 kg

DRUGS (4)
  1. LORAZEPAM [Concomitant]
     Route: 048
  2. AKINETON [Concomitant]
     Route: 048
  3. SEROQUEL [Suspect]
     Route: 048
  4. VALIUM [Concomitant]
     Route: 048

REACTIONS (1)
  - SUDDEN DEATH [None]
